FAERS Safety Report 9263343 (Version 1)
Quarter: 2013Q2

REPORT INFORMATION
  Report Type: Spontaneous
  Country: US (occurrence: None)
  Receive Date: 20130429
  Receipt Date: 20130429
  Transmission Date: 20140414
  Serious: Yes (Hospitalization)
  Sender: FDA-Public Use
  Company Number: None

PATIENT
  Age: 85 Year
  Sex: Male
  Weight: 65.77 kg

DRUGS (1)
  1. SERTRALINE [Suspect]
     Route: 048

REACTIONS (2)
  - Vomiting [None]
  - Faeces discoloured [None]
